FAERS Safety Report 9865138 (Version 1)
Quarter: 2014Q1

REPORT INFORMATION
  Report Type: Spontaneous
  Country: IT (occurrence: IT)
  Receive Date: 20140203
  Receipt Date: 20140203
  Transmission Date: 20141002
  Serious: Yes (Hospitalization)
  Sender: FDA-Public Use
  Company Number: PHHY2014IT010201

PATIENT
  Age: 91 Year
  Sex: Male

DRUGS (5)
  1. ENALAPRIL [Suspect]
     Indication: HYPERTENSION
     Dosage: 5 MG, QD
     Route: 048
     Dates: start: 20130101, end: 20131201
  2. BISOPROLOL [Suspect]
     Indication: HYPERTENSION
     Dosage: 1.25 MG, QD
     Route: 048
     Dates: start: 20130101, end: 20131205
  3. ASA [Concomitant]
     Indication: AORTIC ANEURYSM
     Dosage: 100 MG, UNK
     Route: 048
  4. BROMAZEPAM [Concomitant]
  5. PPI NOS [Concomitant]

REACTIONS (4)
  - Dehydration [Recovered/Resolved]
  - Hyperkalaemia [Recovered/Resolved]
  - Renal failure acute [Recovered/Resolved]
  - Syncope [Recovered/Resolved]
